FAERS Safety Report 19932823 (Version 1)
Quarter: 2021Q4

REPORT INFORMATION
  Report Type: Spontaneous
  Country: US (occurrence: US)
  Receive Date: 20211008
  Receipt Date: 20211008
  Transmission Date: 20220303
  Serious: Yes (Hospitalization)
  Sender: FDA-Public Use
  Company Number: US-STRIDES ARCOLAB LIMITED-2021SP028476

PATIENT
  Age: 16 Year
  Sex: Female

DRUGS (1)
  1. BUSPIRONE HYDROCHLORIDE [Suspect]
     Active Substance: BUSPIRONE HYDROCHLORIDE
     Indication: Product used for unknown indication
     Dosage: 450 MILLIGRAM (7.6 MG/KG) IN ATTEMPT TO HARM HERSELF
     Route: 048

REACTIONS (8)
  - Anion gap abnormal [Recovered/Resolved]
  - Blood bicarbonate abnormal [Recovered/Resolved]
  - Blood lactic acid increased [Recovered/Resolved]
  - Somnolence [Recovered/Resolved]
  - Intentional self-injury [Recovered/Resolved]
  - Intentional overdose [Recovered/Resolved]
  - Nausea [Recovered/Resolved]
  - Dizziness [Recovered/Resolved]
